FAERS Safety Report 25263569 (Version 2)
Quarter: 2025Q2

REPORT INFORMATION
  Report Type: Spontaneous
  Country: ES (occurrence: ES)
  Receive Date: 20250502
  Receipt Date: 20250507
  Transmission Date: 20250717
  Serious: Yes (Life-Threatening, Hospitalization, Other)
  Sender: PFIZER
  Company Number: ES-MLMSERVICE-20250422-PI484776-00097-1

PATIENT
  Age: 67 Year
  Sex: Female

DRUGS (3)
  1. METHYLPREDNISOLONE SODIUM SUCCINATE [Suspect]
     Active Substance: METHYLPREDNISOLONE SODIUM SUCCINATE
     Indication: Immunosuppression
     Dosage: 1 MG/KG, DAILY (EVERY 24 HOURS)
  2. CYCLOSPORINE [Suspect]
     Active Substance: CYCLOSPORINE
     Indication: Immunosuppressant drug therapy
     Dosage: 50 MG, 2X/DAY (EVERY 12HOURS)
  3. MYCOPHENOLIC ACID [Suspect]
     Active Substance: MYCOPHENOLIC ACID
     Indication: Immunosuppressant drug therapy

REACTIONS (11)
  - Cryptosporidiosis infection [Recovered/Resolved]
  - Dehydration [Recovered/Resolved]
  - Electrolyte imbalance [Recovered/Resolved]
  - Depressed level of consciousness [Unknown]
  - Generalised tonic-clonic seizure [Unknown]
  - Cachexia [Unknown]
  - Bradyphrenia [Unknown]
  - Metabolic acidosis [Recovering/Resolving]
  - Renal function test abnormal [Recovering/Resolving]
  - Malabsorption [Recovering/Resolving]
  - Atrial fibrillation [Unknown]
